FAERS Safety Report 26051475 (Version 1)
Quarter: 2025Q4

REPORT INFORMATION
  Report Type: Spontaneous
  Country: EU (occurrence: EU)
  Receive Date: 20251117
  Receipt Date: 20251117
  Transmission Date: 20260118
  Serious: Yes (Hospitalization, Other)
  Sender: CURRAX PHARMACEUTICALS
  Company Number: EU-NALPROPION PHARMACEUTICALS INC.-NO-2025CUR002241

PATIENT
  Sex: Female

DRUGS (15)
  1. BUPROPION HYDROCHLORIDE\NALTREXONE HYDROCHLORIDE [Suspect]
     Active Substance: BUPROPION HYDROCHLORIDE\NALTREXONE HYDROCHLORIDE
     Indication: Obesity
     Dosage: STRENGTH 8/90 MG UNKNOWN DOSE AND FREQUENCY
     Route: 048
  2. BUPROPION HYDROCHLORIDE\NALTREXONE HYDROCHLORIDE [Suspect]
     Active Substance: BUPROPION HYDROCHLORIDE\NALTREXONE HYDROCHLORIDE
     Dosage: 360 MG BUPROPION/32 MG NALTREXONE DAILY
     Route: 048
  3. ESCITALOPRAM [Suspect]
     Active Substance: ESCITALOPRAM OXALATE
     Indication: Product used for unknown indication
     Dosage: 10 MG ? 1
     Route: 048
  4. ESCITALOPRAM [Suspect]
     Active Substance: ESCITALOPRAM OXALATE
     Dosage: 10 MG ? 1
     Route: 048
  5. VALPROATE [Suspect]
     Active Substance: VALPROIC ACID
     Indication: Epilepsy
     Dosage: 1000 MG IV, THEN 2000 MG IV AFTER 1 HOUR INFUSION 200 MG/H
     Route: 042
  6. FENTANYL [Suspect]
     Active Substance: FENTANYL
     Indication: Sedation
     Dosage: 0.1 ?G/KG/H
     Route: 065
  7. METOCLOPRAMIDE [Suspect]
     Active Substance: METOCLOPRAMIDE
     Indication: Vomiting
     Dosage: TWO DOSES OF 10 MG IV AT FOUR-HOUR INTERVALS
     Route: 042
  8. PANTOPRAZOLE [Suspect]
     Active Substance: PANTOPRAZOLE
     Indication: Product used for unknown indication
     Dosage: 40 MG
     Route: 065
  9. METFORMIN [Concomitant]
     Active Substance: METFORMIN HYDROCHLORIDE
     Indication: Product used for unknown indication
     Dosage: 500 MG ? 3
     Route: 065
  10. CANDESARTAN [Concomitant]
     Active Substance: CANDESARTAN
     Indication: Product used for unknown indication
     Dosage: 8 MG ? 1
     Route: 065
  11. ATORVASTATIN [Concomitant]
     Active Substance: ATORVASTATIN
     Indication: Product used for unknown indication
     Dosage: 40 MG ? 1,
     Route: 065
  12. BUDESONIDE\FORMOTEROL [Concomitant]
     Active Substance: BUDESONIDE\FORMOTEROL
     Indication: Product used for unknown indication
     Dosage: 160/4.5 ?G ? 2 REGULARLY
     Route: 055
  13. OXAZEPAM [Concomitant]
     Active Substance: OXAZEPAM
     Indication: Product used for unknown indication
     Dosage: 10 MG
     Route: 065
  14. ZOPICLONE [Concomitant]
     Active Substance: ZOPICLONE
     Indication: Product used for unknown indication
     Dosage: 7.5 MG
     Route: 065
  15. ACETAMINOPHEN [Concomitant]
     Active Substance: ACETAMINOPHEN
     Indication: Product used for unknown indication
     Dosage: 1 G AS NEEDED

REACTIONS (11)
  - Status epilepticus [Not Recovered/Not Resolved]
  - Drug interaction [Recovered/Resolved]
  - Laryngeal oedema [Recovered/Resolved]
  - Stridor [Recovered/Resolved]
  - Hypoxia [Recovered/Resolved]
  - Vaginal infection [Recovered/Resolved]
  - Serotonin syndrome [Unknown]
  - Pyrexia [Recovered/Resolved]
  - Pneumonia [Recovered/Resolved]
  - Hyperhidrosis [Recovered/Resolved]
  - Malaise [Recovered/Resolved]
